FAERS Safety Report 4350803-7 (Version None)
Quarter: 2004Q2

REPORT INFORMATION
  Report Type: 
  Country: None (occurrence: None)
  Receive Date: 20040427
  Receipt Date: 20040414
  Transmission Date: 20050107
  Serious: Yes (Other)
  Sender: FDA-Public Use
  Company Number: 2004025267

PATIENT
  Age: 44 Year
  Sex: Female

DRUGS (2)
  1. NIFEDIPINE [Suspect]
     Indication: RAYNAUD'S PHENOMENON
     Dosage: ORAL
     Route: 048
  2. DILTIAZEM [Concomitant]

REACTIONS (13)
  - ACANTHOSIS [None]
  - CONNECTIVE TISSUE DISORDER [None]
  - CYANOSIS [None]
  - DRUG INTOLERANCE [None]
  - DYSPHAGIA [None]
  - ENDOSCOPY ABNORMAL [None]
  - GASTROOESOPHAGEAL REFLUX DISEASE [None]
  - HYPERKERATOSIS [None]
  - HYPOAESTHESIA [None]
  - MOBILITY DECREASED [None]
  - OEDEMA PERIPHERAL [None]
  - PERIPHERAL ISCHAEMIA [None]
  - PULMONARY FIBROSIS [None]
